FAERS Safety Report 4433886-5 (Version None)
Quarter: 2004Q3

REPORT INFORMATION
  Report Type: 
  Country: None (occurrence: None)
  Receive Date: 20040826
  Receipt Date: 20040823
  Transmission Date: 20050211
  Serious: Yes (Life-Threatening)
  Sender: FDA-Public Use
  Company Number: DE-GLAXOSMITHKLINE-D0044486A

PATIENT
  Sex: Male

DRUGS (2)
  1. AUGMENTIN [Suspect]
     Indication: PROPHYLAXIS
     Route: 042
     Dates: start: 20040823
  2. RANITIDINE [Concomitant]
     Route: 065

REACTIONS (2)
  - ASPHYXIA [None]
  - PULMONARY OEDEMA [None]
